FAERS Safety Report 8974427 (Version 1)
Quarter: 2012Q4

REPORT INFORMATION
  Report Type: Spontaneous
  Country: US (occurrence: None)
  Receive Date: 20121211
  Receipt Date: 20121211
  Transmission Date: 20130627
  Serious: Yes (Hospitalization)
  Sender: FDA-Public Use
  Company Number: UTC-026368

PATIENT
  Age: 7 Year
  Sex: Female
  Weight: 22 kg

DRUGS (2)
  1. REMODULIN [Suspect]
     Indication: PRIMARY PULMONARY HYPERTENSION
     Dosage: 47.52 ug/kg (0.33 ug/kg, 1 in 1 min), intravenous drip
     Route: 041
     Dates: start: 20121115
  2. COUMADIN (WARFARIN SODIUM) [Concomitant]

REACTIONS (1)
  - Viral infection [None]
